FAERS Safety Report 7285787-5 (Version None)
Quarter: 2011Q1

REPORT INFORMATION
  Report Type: 
  Country: None (occurrence: None)
  Receive Date: 20110210
  Receipt Date: 20110131
  Transmission Date: 20110831
  Serious: Yes (Hospitalization)
  Sender: FDA-Public Use
  Company Number: GXBR2010US02131

PATIENT
  Sex: Female
  Weight: 70.295 kg

DRUGS (8)
  1. ACIPHEX [Concomitant]
     Indication: GASTROOESOPHAGEAL REFLUX DISEASE
     Dosage: 20 MG, UNK
  2. VALIUM [Concomitant]
     Indication: VERTIGO
     Dosage: 2 MG, UNK
  3. TENORMIN [Concomitant]
     Indication: HYPERTENSION
     Dosage: 50 MG, QD
  4. METFORMIN [Concomitant]
     Indication: DIABETES MELLITUS
     Dosage: 500 MG, BID
  5. COUMADIN [Concomitant]
     Indication: ATRIAL FIBRILLATION
     Dosage: 3 MG, UNK
  6. HYZAAR [Concomitant]
     Indication: HYPERTENSION
     Dosage: 50/12.5MG QD
  7. VYTORIN [Concomitant]
     Indication: BLOOD CHOLESTEROL INCREASED
     Dosage: 10/40MG
     Dates: end: 20101223
  8. ENOXAPARIN SODIUM [Suspect]
     Indication: HIP ARTHROPLASTY
     Dosage: 60 MG, BID
     Dates: start: 20101210, end: 20101214

REACTIONS (9)
  - CEREBROVASCULAR ACCIDENT [None]
  - INJECTION SITE PAIN [None]
  - INJECTION SITE WARMTH [None]
  - SPEECH DISORDER [None]
  - INJECTION SITE HAEMATOMA [None]
  - INJECTION SITE ERYTHEMA [None]
  - INJECTION SITE NODULE [None]
  - CONTUSION [None]
  - INJECTION SITE SWELLING [None]
